FAERS Safety Report 6651157-3 (Version None)
Quarter: 2010Q1

REPORT INFORMATION
  Report Type: 
  Country: None (occurrence: None)
  Receive Date: 20100325
  Receipt Date: 20100311
  Transmission Date: 20100710
  Serious: No
  Sender: FDA-Public Use
  Company Number: US-B.I. PHARMACEUTICALS,INC./RIDGEFIELD-2010-BP-02926BP

PATIENT
  Age: 48 Year
  Sex: Male

DRUGS (1)
  1. FLOMAX [Suspect]
     Dosage: 3.2 MG
     Route: 048
     Dates: start: 20100224, end: 20100310

REACTIONS (2)
  - BLOOD CREATININE INCREASED [None]
  - INCORRECT DOSE ADMINISTERED [None]
